FAERS Safety Report 12602647 (Version 1)
Quarter: 2016Q3

REPORT INFORMATION
  Report Type: Spontaneous
  Country: US (occurrence: None)
  Receive Date: 20160727
  Receipt Date: 20160727
  Transmission Date: 20161109
  Serious: Yes (Hospitalization)
  Sender: FDA-Public Use
  Company Number: None

PATIENT
  Age: 67 Year
  Sex: Female
  Weight: 58.06 kg

DRUGS (3)
  1. SOVALDI [Suspect]
     Active Substance: SOFOSBUVIR
     Indication: HEPATITIS C
     Route: 048
  2. RIBASPHERE [Concomitant]
     Active Substance: RIBAVIRIN
  3. DAKLINZA [Suspect]
     Active Substance: DACLATASVIR
     Indication: HEPATITIS C
     Route: 048

REACTIONS (5)
  - Nausea [None]
  - Headache [None]
  - Therapy cessation [None]
  - Fatigue [None]
  - Asthenia [None]

NARRATIVE: CASE EVENT DATE: 20160726
